FAERS Safety Report 9876430 (Version 1)
Quarter: 2014Q1

REPORT INFORMATION
  Report Type: Spontaneous
  Country: US (occurrence: None)
  Receive Date: 20140205
  Receipt Date: 20140205
  Transmission Date: 20141002
  Serious: Yes (Hospitalization)
  Sender: FDA-Public Use
  Company Number: None

PATIENT
  Age: 41 Year
  Sex: Female
  Weight: 47 kg

DRUGS (2)
  1. BEVACIZUMAB (RHUMAB VEGF) (704865) [Suspect]
  2. NICOTINE [Concomitant]

REACTIONS (9)
  - Hypotension [None]
  - Tachycardia [None]
  - Anaemia [None]
  - Sepsis [None]
  - Pneumonia [None]
  - Lung abscess [None]
  - Oesophageal fistula [None]
  - Empyema [None]
  - Pleurisy [None]
